FAERS Safety Report 19955801 (Version 1)
Quarter: 2021Q4

REPORT INFORMATION
  Report Type: Spontaneous
  Country: ES (occurrence: ES)
  Receive Date: 20211014
  Receipt Date: 20211014
  Transmission Date: 20220303
  Serious: Yes (Hospitalization)
  Sender: FDA-Public Use
  Company Number: None

PATIENT
  Age: 39 Year
  Sex: Female

DRUGS (5)
  1. NAPROXEN SODIUM [Suspect]
     Active Substance: NAPROXEN SODIUM
     Indication: Migraine
     Dosage: 1-1-1
     Route: 048
     Dates: start: 20210506, end: 20210511
  2. CEFDITOREN [Suspect]
     Active Substance: CEFDITOREN
     Indication: Pyelonephritis acute
     Dosage: 1-0-0
     Route: 048
     Dates: start: 20210512, end: 20210512
  3. METAMIZOL [Suspect]
     Active Substance: METAMIZOLE SODIUM
     Indication: Migraine
     Dosage: 1-1-1
     Route: 048
     Dates: start: 20210506, end: 20210511
  4. NARATRIPTAN HYDROCHLORIDE [Suspect]
     Active Substance: NARATRIPTAN HYDROCHLORIDE
     Indication: Migraine
     Dosage: SP
     Route: 048
     Dates: start: 20210506, end: 20210511
  5. DEXKETOPROFEN [Suspect]
     Active Substance: DEXKETOPROFEN
     Indication: Pain
     Dosage: 1-1-1
     Route: 048
     Dates: start: 20210511, end: 20210513

REACTIONS (1)
  - Meningitis aseptic [Recovered/Resolved]

NARRATIVE: CASE EVENT DATE: 20210513
